FAERS Safety Report 10229414 (Version 1)
Quarter: 2014Q2

REPORT INFORMATION
  Report Type: Spontaneous
  Country: DK (occurrence: None)
  Receive Date: 20140609
  Receipt Date: 20140609
  Transmission Date: 20141212
  Serious: Yes (Life-Threatening, Hospitalization, Other)
  Sender: FDA-Public Use
  Company Number: DK-MDCO-14-00112

PATIENT
  Age: 72 Year
  Sex: Female
  Weight: 82 kg

DRUGS (7)
  1. BIVALIRUDIN [Suspect]
     Indication: PERCUTANEOUS CORONARY INTERVENTION
     Route: 040
     Dates: start: 20140410, end: 20140410
  2. ACETYLSALICYLIC ACID [Suspect]
     Indication: ISCHAEMIC HEART DISEASE PROPHYLAXIS
  3. CLOPIDOGREL [Suspect]
     Indication: PERCUTANEOUS CORONARY INTERVENTION
     Route: 048
     Dates: start: 20140409, end: 20140409
  4. METOPROLOL (METOPROLOL) [Concomitant]
  5. LOSARTAN (LOSARTAN) [Concomitant]
  6. HYDROCHLOROTHIAZIDE (HYDROCHLOROTHIAZIDE) [Concomitant]
  7. LERCANIDIPINE (LERCANIDIPINE) [Concomitant]

REACTIONS (8)
  - Platelet count decreased [None]
  - Coronary artery dissection [None]
  - Ventricular fibrillation [None]
  - Hypothermia [None]
  - Post procedural haemorrhage [None]
  - Post procedural haemorrhage [None]
  - International normalised ratio increased [None]
  - Activated partial thromboplastin time [None]
